FAERS Safety Report 22354042 (Version 1)
Quarter: 2023Q2

REPORT INFORMATION
  Report Type: Report from Study
  Country: GB (occurrence: GB)
  Receive Date: 20230523
  Receipt Date: 20230523
  Transmission Date: 20230722
  Serious: Yes (Other)
  Sender: FDA-Public Use
  Company Number: GB-MHRA-MED-202303301204546420-KFYVP

PATIENT
  Sex: Male

DRUGS (2)
  1. LAMOTRIGINE [Suspect]
     Active Substance: LAMOTRIGINE
     Indication: Epilepsy
     Dosage: UNIT DOSE: 200MG, FREQUENCY TIME: 1 DAYS
     Route: 065
     Dates: end: 20200930
  2. LEVETIRACETAM [Concomitant]
     Active Substance: LEVETIRACETAM
     Indication: Epilepsy

REACTIONS (2)
  - Toxic optic neuropathy [Recovered/Resolved]
  - Vision blurred [Unknown]

NARRATIVE: CASE EVENT DATE: 20200810
